FAERS Safety Report 7235167-3 (Version None)
Quarter: 2011Q1

REPORT INFORMATION
  Report Type: 
  Country: None (occurrence: None)
  Receive Date: 20110107
  Receipt Date: 20101223
  Transmission Date: 20110831
  Serious: Yes (Other)
  Sender: FDA-Public Use
  Company Number: AUR-APL-2010-03248

PATIENT
  Age: 42 Year
  Sex: Male
  Weight: 132 kg

DRUGS (2)
  1. LISINOPRIL AND HYDROCHLOROTHIAZIDE [Suspect]
     Indication: BLOOD PRESSURE
     Dosage: 20/12.5MG - DAILY
     Dates: end: 20101001
  2. AMLODIPINE BESYLATE [Suspect]
     Indication: BLOOD PRESSURE ABNORMAL
     Dosage: 10MG - DAILY - ORAL
     Route: 048
     Dates: start: 20080101, end: 20101001

REACTIONS (4)
  - CHEST DISCOMFORT [None]
  - DYSPNOEA [None]
  - VISUAL IMPAIRMENT [None]
  - CHEST PAIN [None]
